FAERS Safety Report 21243659 (Version 1)
Quarter: 2022Q3

REPORT INFORMATION
  Report Type: Spontaneous
  Country: US (occurrence: US)
  Receive Date: 20220823
  Receipt Date: 20220823
  Transmission Date: 20221027
  Serious: Yes (Other)
  Sender: FDA-Public Use
  Company Number: US-NOVARTISPH-NVSC2022US187898

PATIENT
  Age: 48 Year
  Sex: Male

DRUGS (10)
  1. CARBOPLATIN [Suspect]
     Active Substance: CARBOPLATIN
     Indication: Lung adenocarcinoma stage IV
     Dosage: UNK
     Route: 065
  2. CARBOPLATIN [Suspect]
     Active Substance: CARBOPLATIN
     Indication: Metastases to bone
  3. PEMETREXED [Suspect]
     Active Substance: PEMETREXED
     Indication: Lung adenocarcinoma stage IV
     Dosage: UNK
     Route: 065
  4. PEMETREXED [Suspect]
     Active Substance: PEMETREXED
     Indication: Metastases to bone
  5. PEMBROLIZUMAB [Suspect]
     Active Substance: PEMBROLIZUMAB
     Indication: Lung adenocarcinoma stage IV
     Dosage: UNK
     Route: 065
  6. PEMBROLIZUMAB [Suspect]
     Active Substance: PEMBROLIZUMAB
     Indication: Metastases to bone
  7. PACLITAXEL [Suspect]
     Active Substance: PACLITAXEL
     Indication: Lung adenocarcinoma stage IV
     Dosage: UNK
     Route: 065
  8. PACLITAXEL [Suspect]
     Active Substance: PACLITAXEL
     Indication: Metastases to bone
  9. BEVACIZUMAB [Suspect]
     Active Substance: BEVACIZUMAB
     Indication: Lung adenocarcinoma stage IV
     Dosage: UNK
     Route: 065
  10. BEVACIZUMAB [Suspect]
     Active Substance: BEVACIZUMAB
     Indication: Metastases to bone

REACTIONS (4)
  - Lung adenocarcinoma stage IV [Unknown]
  - Metastases to bone [Unknown]
  - Malignant neoplasm progression [Unknown]
  - Product use in unapproved indication [Unknown]
